FAERS Safety Report 8111177-9 (Version None)
Quarter: 2012Q1

REPORT INFORMATION
  Report Type: 
  Country: None (occurrence: None)
  Receive Date: 20120203
  Receipt Date: 20110603
  Transmission Date: 20120608
  Serious: No
  Sender: FDA-Public Use
  Company Number: US-GLAXOSMITHKLINE-A0930168A

PATIENT
  Age: 57 Year
  Sex: Female

DRUGS (4)
  1. WELLBUTRIN XL [Concomitant]
  2. LIPITOR [Concomitant]
  3. LAMICTAL [Suspect]
     Indication: BIPOLAR DISORDER
     Dosage: 200MG PER DAY
     Route: 048
     Dates: start: 20050101
  4. NADOLOL [Concomitant]

REACTIONS (3)
  - PRODUCT QUALITY ISSUE [None]
  - SOMNOLENCE [None]
  - HEADACHE [None]
